FAERS Safety Report 4983605-9 (Version None)
Quarter: 2006Q2

REPORT INFORMATION
  Report Type: 
  Country: None (occurrence: None)
  Receive Date: 20060425
  Receipt Date: 20060425
  Transmission Date: 20061013
  Serious: Yes (Other)
  Sender: FDA-Public Use
  Company Number: None

PATIENT
  Age: 66 Year
  Sex: Male
  Weight: 127.5 kg

DRUGS (1)
  1. METFORMIN [Suspect]

REACTIONS (1)
  - DIARRHOEA [None]
